FAERS Safety Report 11039668 (Version 3)
Quarter: 2015Q3

REPORT INFORMATION
  Report Type: Spontaneous
  Country: US (occurrence: US)
  Receive Date: 20150416
  Receipt Date: 20150820
  Transmission Date: 20151125
  Serious: Yes (Death, Hospitalization, Other)
  Sender: FDA-Public Use
  Company Number: US-009507513-1504USA015481

PATIENT
  Sex: Male
  Weight: 135.6 kg

DRUGS (5)
  1. VICTOZA [Suspect]
     Active Substance: LIRAGLUTIDE
     Indication: TYPE 2 DIABETES MELLITUS
     Dosage: 0.6 ML, QD
     Dates: start: 20110810
  2. LOTREL [Concomitant]
     Active Substance: AMLODIPINE BESYLATE\BENAZEPRIL HYDROCHLORIDE
     Dosage: 5-20 MG, TAKE 2 CAPS PO QD
     Route: 048
     Dates: start: 20090928, end: 20091231
  3. VICTOZA [Suspect]
     Active Substance: LIRAGLUTIDE
     Dosage: 1.8 ML, QD
     Dates: start: 20120125
  4. JANUMET [Suspect]
     Active Substance: METFORMIN HYDROCHLORIDE\SITAGLIPTIN PHOSPHATE
     Indication: TYPE 2 DIABETES MELLITUS
     Dosage: 50/1000 MG, QD
     Route: 048
     Dates: start: 200912, end: 20110810
  5. JANUVIA [Suspect]
     Active Substance: SITAGLIPTIN PHOSPHATE
     Indication: TYPE 2 DIABETES MELLITUS
     Dosage: 100 MG, QD
     Route: 048
     Dates: start: 20090928, end: 20091102

REACTIONS (20)
  - Large intestine polyp [Unknown]
  - Helicobacter infection [Unknown]
  - Inappropriate schedule of drug administration [Unknown]
  - Osteosclerosis [Unknown]
  - Hyperkalaemia [Unknown]
  - Coronary artery disease [Unknown]
  - Hepatic lesion [Unknown]
  - Back pain [Not Recovered/Not Resolved]
  - Metastases to central nervous system [Unknown]
  - Surgery [Unknown]
  - Pancreatic carcinoma metastatic [Fatal]
  - Cerebrovascular accident [Unknown]
  - Carotid artery stent insertion [Unknown]
  - Acute respiratory failure [Unknown]
  - Diabetes mellitus inadequate control [Unknown]
  - Compression fracture [Unknown]
  - Sleep apnoea syndrome [Unknown]
  - Metastases to bone [Unknown]
  - Renal failure [Unknown]
  - Musculoskeletal chest pain [Unknown]

NARRATIVE: CASE EVENT DATE: 200912
